FAERS Safety Report 24555501 (Version 1)
Quarter: 2024Q4

REPORT INFORMATION
  Report Type: Spontaneous
  Country: US (occurrence: None)
  Receive Date: 20241025
  Receipt Date: 20241025
  Transmission Date: 20250115
  Serious: Yes (Other)
  Sender: Public
  Company Number: None

PATIENT
  Age: 49 Year
  Sex: Female

DRUGS (1)
  1. BOSENTAN [Suspect]
     Active Substance: BOSENTAN
     Indication: Scleroderma
     Dosage: 62.5MG BID ORAL
     Route: 048
     Dates: start: 20241023

REACTIONS (2)
  - Off label use [None]
  - Interstitial lung disease [None]

NARRATIVE: CASE EVENT DATE: 20241023
